FAERS Safety Report 9807122 (Version 2)
Quarter: 2015Q4

REPORT INFORMATION
  Report Type: Report from Study
  Country: US (occurrence: US)
  Receive Date: 20140110
  Receipt Date: 20151109
  Transmission Date: 20160305
  Serious: Yes (Hospitalization)
  Sender: FDA-Public Use
  Company Number: US-ROCHE-1329154

PATIENT
  Sex: Male

DRUGS (16)
  1. LUCENTIS [Suspect]
     Active Substance: RANIBIZUMAB
     Indication: MACULAR OEDEMA
  2. AMARYL [Concomitant]
     Active Substance: GLIMEPIRIDE
  3. TETRACAINE. [Concomitant]
     Active Substance: TETRACAINE
     Route: 065
  4. DILOXANIDE [Concomitant]
     Dosage: 04-AUG-2011
     Route: 065
  5. ZOCOR [Concomitant]
     Active Substance: SIMVASTATIN
  6. BETADINE [Concomitant]
     Active Substance: POVIDONE-IODINE
     Route: 065
  7. GABAPENTIN. [Concomitant]
     Active Substance: GABAPENTIN
  8. LANTUS [Concomitant]
     Active Substance: INSULIN GLARGINE
  9. SIMVASTATIN. [Concomitant]
     Active Substance: SIMVASTATIN
     Route: 065
     Dates: start: 20110804
  10. DIOVAN [Concomitant]
     Active Substance: VALSARTAN
  11. EXFORGE [Concomitant]
     Active Substance: AMLODIPINE BESYLATE\VALSARTAN
  12. LUCENTIS [Suspect]
     Active Substance: RANIBIZUMAB
     Indication: DIABETIC RETINOPATHY
     Route: 050
  13. REQUIP [Concomitant]
     Active Substance: ROPINIROLE HYDROCHLORIDE
  14. INSULIN [Concomitant]
     Active Substance: INSULIN NOS
  15. PROPARACAINE [Concomitant]
     Active Substance: PROPARACAINE
     Route: 065
  16. TRIAMCINOLONE [Concomitant]
     Active Substance: TRIAMCINOLONE
     Route: 050

REACTIONS (16)
  - Periorbital fat herniation [Unknown]
  - Macular fibrosis [Unknown]
  - Cystoid macular oedema [Unknown]
  - Ocular vascular disorder [Unknown]
  - Eye haemorrhage [Unknown]
  - Diplopia [Unknown]
  - Vitreous detachment [Unknown]
  - Pneumonia [Unknown]
  - Visual acuity reduced [Unknown]
  - Pupillary reflex impaired [Unknown]
  - Retinopathy hypertensive [Unknown]
  - Posterior capsule opacification [Unknown]
  - Vision blurred [Unknown]
  - Blood glucose increased [Unknown]
  - Retinal exudates [Unknown]
  - Hypertension [Unknown]
